FAERS Safety Report 7049501-0 (Version None)
Quarter: 2010Q4

REPORT INFORMATION
  Report Type: 
  Country: None (occurrence: None)
  Receive Date: 20101018
  Receipt Date: 20101013
  Transmission Date: 20110411
  Serious: Yes (Death)
  Sender: FDA-Public Use
  Company Number: US-SANOFI-AVENTIS-2010SA062653

PATIENT
  Age: 80 Year
  Sex: Male

DRUGS (1)
  1. AMBIEN CR [Suspect]
     Route: 048
     Dates: end: 20101013

REACTIONS (1)
  - CONVULSION [None]
